FAERS Safety Report 6901397-0 (Version None)
Quarter: 2010Q3

REPORT INFORMATION
  Report Type: 
  Country: None (occurrence: None)
  Receive Date: 20100803
  Receipt Date: 20080303
  Transmission Date: 20110219
  Serious: No
  Sender: FDA-Public Use
  Company Number: US-PFIZER INC-2008010571

PATIENT
  Sex: Female
  Weight: 59.09 kg

DRUGS (5)
  1. LYRICA [Suspect]
     Indication: COMPLEX REGIONAL PAIN SYNDROME
     Dates: start: 20080119, end: 20080126
  2. VICOPROFEN [Concomitant]
  3. TEMAZEPAM [Concomitant]
  4. FENTANYL CITRATE [Concomitant]
  5. SENNA [Concomitant]

REACTIONS (3)
  - MUSCLE SPASMS [None]
  - MUSCLE TWITCHING [None]
  - PARAESTHESIA [None]
